FAERS Safety Report 13901899 (Version 1)
Quarter: 2017Q3

REPORT INFORMATION
  Report Type: Spontaneous
  Country: US (occurrence: US)
  Receive Date: 20170824
  Receipt Date: 20170824
  Transmission Date: 20171127
  Serious: No
  Sender: FDA-Public Use
  Company Number: US-ROCHE-1129742

PATIENT
  Sex: Female

DRUGS (5)
  1. HERCEPTIN [Suspect]
     Active Substance: TRASTUZUMAB
     Indication: BREAST CANCER
     Dosage: LOADING DOSE
     Route: 065
     Dates: start: 20000831
  2. TAMOXIFEN [Concomitant]
     Active Substance: TAMOXIFEN
  3. ARIMIDEX [Concomitant]
     Active Substance: ANASTROZOLE
  4. HERCEPTIN [Suspect]
     Active Substance: TRASTUZUMAB
     Dosage: MAINTENANCE DOSE
     Route: 065
  5. TAXOL [Concomitant]
     Active Substance: PACLITAXEL

REACTIONS (6)
  - Disease progression [Unknown]
  - Musculoskeletal chest pain [Unknown]
  - Abdominal pain upper [Unknown]
  - Musculoskeletal pain [Unknown]
  - Cough [Unknown]
  - Hypoaesthesia [Unknown]
